FAERS Safety Report 9505720 (Version 1)
Quarter: 2013Q1

REPORT INFORMATION
  Report Type: Spontaneous
  Country: US (occurrence: None)
  Receive Date: 20130224
  Receipt Date: 20130224
  Transmission Date: 20140127
  Serious: Yes (Other)
  Sender: FDA-Public Use
  Company Number: 1210USA000485

PATIENT
  Sex: Male

DRUGS (10)
  1. JANUMET [Suspect]
     Route: 048
  2. ZOCOR [Suspect]
     Route: 048
  3. PRINIVIL [Suspect]
  4. TRICOR [Suspect]
  5. BENZTROPINE [Suspect]
  6. CLONAZEPAM (CLONAZEPAM) (CLONAZEPAM) [Suspect]
  7. ATENOL [Suspect]
  8. ASPIRIN (ASPIRIN) [Suspect]
  9. RISPERIDONE (RISPERIDONE) [Suspect]
  10. IRON [Suspect]

REACTIONS (1)
  - Renal failure acute [None]
